FAERS Safety Report 13056351 (Version 3)
Quarter: 2018Q1

REPORT INFORMATION
  Report Type: Spontaneous
  Country: US (occurrence: US)
  Receive Date: 20161222
  Receipt Date: 20180116
  Transmission Date: 20180508
  Serious: Yes (Death)
  Sender: FDA-Public Use
  Company Number: US-INSYS THERAPEUTICS, INC-INS201612-000796

PATIENT
  Age: 67 Year
  Sex: Male

DRUGS (7)
  1. SUBSYS [Suspect]
     Active Substance: FENTANYL
     Indication: BREAKTHROUGH PAIN
     Route: 060
  2. DIGOXIN. [Concomitant]
     Active Substance: DIGOXIN
  3. METOPROLOL. [Concomitant]
     Active Substance: METOPROLOL
  4. SUBSYS [Suspect]
     Active Substance: FENTANYL
     Route: 060
  5. ASPIRIN. [Concomitant]
     Active Substance: ASPIRIN
  6. DOCUSATE SODIUM. [Concomitant]
     Active Substance: DOCUSATE SODIUM
  7. MORPHINE [Concomitant]
     Active Substance: MORPHINE

REACTIONS (1)
  - Neoplasm progression [Fatal]

NARRATIVE: CASE EVENT DATE: 20160220
